FAERS Safety Report 13349709 (Version 1)
Quarter: 2017Q1

REPORT INFORMATION
  Report Type: Spontaneous
  Country: DK (occurrence: DK)
  Receive Date: 20170320
  Receipt Date: 20170320
  Transmission Date: 20170429
  Serious: Yes (Death, Life-Threatening, Hospitalization, Disabling)
  Sender: FDA-Public Use
  Company Number: DK-TEVA-748997ACC

PATIENT
  Age: 70 Year
  Sex: Male
  Weight: 94 kg

DRUGS (14)
  1. SILDENAFIL ^ACCORD^ [Concomitant]
     Indication: ERECTILE DYSFUNCTION
  2. XARELTO [Suspect]
     Active Substance: RIVAROXABAN
     Indication: ATRIAL FIBRILLATION
     Dosage: 20 MILLIGRAM DAILY; STRENGHT: 20 MG
     Route: 048
     Dates: start: 201601
  3. COMBAR [Concomitant]
     Active Substance: MIRTAZAPINE
     Indication: NEURALGIA
  4. LANSOPRAM [Concomitant]
     Indication: GASTROOESOPHAGEAL REFLUX DISEASE
  5. DULOXETINE TEVA [Suspect]
     Active Substance: DULOXETINE HYDROCHLORIDE
     Indication: NEURALGIA
     Dosage: 60 MILLIGRAM DAILY; STRENGHT: 30 MG.
     Route: 048
     Dates: start: 20170119
  6. ALFUZOSIN ^ORIFARM^ [Concomitant]
     Indication: DYSURIA
  7. FUROSEMID ^ORIFARM^ [Concomitant]
     Indication: DIURETIC THERAPY
  8. METOPROLOLSUCCINAT ^HEXAL^ [Concomitant]
     Active Substance: METOPROLOL SUCCINATE
     Indication: ARRHYTHMIA
  9. PARACETAMOL [Concomitant]
     Active Substance: ACETAMINOPHEN
     Indication: PAIN
  10. IBUPROFEN. [Suspect]
     Active Substance: IBUPROFEN
     Indication: BACK PAIN
     Dosage: 1200 MILLIGRAM DAILY; STRENGHT: 400 MG
     Route: 048
     Dates: start: 20170119
  11. FENTANYL ^ORION^ [Concomitant]
     Indication: PAIN
  12. KODEIN ^DAK^ [Concomitant]
     Indication: PAIN
  13. ALDACTONE [Concomitant]
     Active Substance: SPIRONOLACTONE
     Indication: DIURETIC THERAPY
  14. FINASTERID ^SANDOZ^ [Concomitant]
     Indication: PROSTATOMEGALY

REACTIONS (3)
  - Brain midline shift [Fatal]
  - Brain oedema [Fatal]
  - Haemorrhage intracranial [Fatal]

NARRATIVE: CASE EVENT DATE: 201703
